FAERS Safety Report 10382091 (Version 1)
Quarter: 2014Q3

REPORT INFORMATION
  Report Type: Spontaneous
  Country: DE (occurrence: DE)
  Receive Date: 20140813
  Receipt Date: 20140813
  Transmission Date: 20150326
  Serious: Yes (Other)
  Sender: FDA-Public Use
  Company Number: DE-PFIZER INC-2014220996

PATIENT
  Age: 86 Year
  Sex: Male

DRUGS (1)
  1. CARDULAR PP [Suspect]
     Active Substance: DOXAZOSIN MESYLATE
     Dosage: UNK
     Dates: end: 2010

REACTIONS (1)
  - Cardiac failure [Unknown]
